FAERS Safety Report 5556086-4 (Version None)
Quarter: 2007Q4

REPORT INFORMATION
  Report Type: 
  Country: None (occurrence: None)
  Receive Date: 20071213
  Receipt Date: 20071210
  Transmission Date: 20080405
  Serious: Yes (Life-Threatening, Other)
  Sender: FDA-Public Use
  Company Number: PHEH2007US15656

PATIENT
  Sex: Male

DRUGS (3)
  1. LOPRESSOR [Suspect]
     Indication: ARTERIAL OCCLUSIVE DISEASE
     Dates: start: 20040101
  2. GLUCOPHAGE [Concomitant]
  3. PLAVIX [Concomitant]

REACTIONS (3)
  - BLOOD PRESSURE DECREASED [None]
  - HEART RATE DECREASED [None]
  - LOSS OF CONSCIOUSNESS [None]
